FAERS Safety Report 4433470-3 (Version None)
Quarter: 2004Q3

REPORT INFORMATION
  Report Type: 
  Country: None (occurrence: None)
  Receive Date: 20040826
  Receipt Date: 20040604
  Transmission Date: 20050211
  Serious: Yes (Other)
  Sender: FDA-Public Use
  Company Number: GB-JNJFOC-20040601214

PATIENT
  Age: 57 Year
  Sex: Female
  Weight: 73 kg

DRUGS (7)
  1. REMICADE [Suspect]
     Indication: RHEUMATOID ARTHRITIS
     Route: 042
  2. METHOTREXATE [Concomitant]
     Route: 049
  3. FOLIC ACID [Concomitant]
     Route: 049
  4. CO-PROXAMOL [Concomitant]
     Route: 049
  5. CO-PROXAMOL [Concomitant]
     Dosage: DOSE: 2
     Route: 049
  6. ZOTON [Concomitant]
     Route: 049
  7. VENTOLIN [Concomitant]
     Dosage: DOSE PRN
     Route: 055

REACTIONS (3)
  - ANGER [None]
  - CRYING [None]
  - MOOD SWINGS [None]
